FAERS Safety Report 20378349 (Version 3)
Quarter: 2022Q2

REPORT INFORMATION
  Report Type: Spontaneous
  Country: US (occurrence: US)
  Receive Date: 20220126
  Receipt Date: 20220403
  Transmission Date: 20220721
  Serious: No
  Sender: FDA-Public Use
  Company Number: US-SA-SAC20220125000075

PATIENT
  Sex: Female

DRUGS (11)
  1. DUPIXENT [Suspect]
     Active Substance: DUPILUMAB
     Indication: Multiple sclerosis
     Dosage: 300 MG, QOW
     Route: 058
     Dates: start: 202002
  2. DUPIXENT [Suspect]
     Active Substance: DUPILUMAB
     Indication: Dermatitis atopic
     Dosage: 300 MG, QOW
     Route: 058
     Dates: start: 202102
  3. VELETRI [Suspect]
     Active Substance: EPOPROSTENOL
  4. AUBAGIO [Concomitant]
     Active Substance: TERIFLUNOMIDE
  5. TOPIRAMATE [Concomitant]
     Active Substance: TOPIRAMATE
  6. TOPIRAMATE [Concomitant]
     Active Substance: TOPIRAMATE
  7. SIMVASTATIN [Concomitant]
     Active Substance: SIMVASTATIN
  8. HYDROXYZINE HYDROCHLORIDE [Concomitant]
     Active Substance: HYDROXYZINE HYDROCHLORIDE
     Dosage: 50MG
  9. LISINOPRIL [Concomitant]
     Active Substance: LISINOPRIL
  10. SERTRALINE HYDROCHLORIDE [Concomitant]
     Active Substance: SERTRALINE HYDROCHLORIDE
     Dosage: 50MG
  11. MESALAMINE [Concomitant]
     Active Substance: MESALAMINE
     Dosage: 1.2 G

REACTIONS (12)
  - Diarrhoea [Unknown]
  - Eczema [Unknown]
  - Medical device site irritation [Unknown]
  - Tenderness [Unknown]
  - Pruritus [Unknown]
  - COVID-19 [Unknown]
  - SARS-CoV-2 test positive [Unknown]
  - Nasal congestion [Unknown]
  - Cough [Unknown]
  - Pain in jaw [Unknown]
  - Medical device site scab [Unknown]
  - Product use in unapproved indication [Unknown]

NARRATIVE: CASE EVENT DATE: 20220101
